FAERS Safety Report 9231377 (Version 5)
Quarter: 2013Q2

REPORT INFORMATION
  Report Type: Spontaneous
  Country: CO (occurrence: CO)
  Receive Date: 20130412
  Receipt Date: 20130604
  Transmission Date: 20140414
  Serious: Yes (Hospitalization, Other)
  Sender: FDA-Public Use
  Company Number: CO-VERTEX PHARMACEUTICALS INC.-2013-004882

PATIENT
  Age: 54 Year
  Sex: Male
  Weight: 58 kg

DRUGS (4)
  1. INCIVO [Suspect]
     Indication: HEPATITIS C
     Dosage: 375 MG, TID
     Route: 048
     Dates: start: 20130308
  2. INTERFERON [Concomitant]
     Indication: HEPATITIS C
     Dosage: DOSAGE FORM: AMPOULES
     Route: 058
     Dates: start: 20130308
  3. RIBAVIRIN [Concomitant]
     Indication: HEPATITIS C
     Dosage: DOSAGE FORM: TABLET
     Route: 048
     Dates: start: 20130318
  4. RIBAVIRIN [Concomitant]
     Dosage: DOSAGE FORM: TABLET
     Route: 048
     Dates: start: 20130308

REACTIONS (10)
  - White blood cell count decreased [Unknown]
  - Asthenia [Unknown]
  - Asthenia [Unknown]
  - Encephalopathy [Recovered/Resolved]
  - Acquired haemophilia [Not Recovered/Not Resolved]
  - Pyrexia [Not Recovered/Not Resolved]
  - Haemoglobin decreased [Unknown]
  - Rash generalised [Recovered/Resolved]
  - Chills [Not Recovered/Not Resolved]
  - Malaise [Not Recovered/Not Resolved]
